FAERS Safety Report 11817229 (Version 1)
Quarter: 2015Q4

REPORT INFORMATION
  Report Type: Spontaneous
  Country: US (occurrence: US)
  Receive Date: 20151210
  Receipt Date: 20151210
  Transmission Date: 20160305
  Serious: No
  Sender: FDA-Public Use
  Company Number: US-JNJFOC-20151118195

PATIENT
  Sex: Male

DRUGS (1)
  1. RISPERDAL [Suspect]
     Active Substance: RISPERIDONE
     Indication: PSYCHOTIC BEHAVIOUR
     Route: 048

REACTIONS (5)
  - Blood oestrogen increased [Unknown]
  - Breast discharge [Unknown]
  - Gynaecomastia [Unknown]
  - Breast tenderness [Unknown]
  - Weight increased [Unknown]
